FAERS Safety Report 7421380-9 (Version None)
Quarter: 2011Q2

REPORT INFORMATION
  Report Type: 
  Country: None (occurrence: None)
  Receive Date: 20110418
  Receipt Date: 20110411
  Transmission Date: 20111010
  Serious: Yes (Hospitalization)
  Sender: FDA-Public Use
  Company Number: US-GILEAD-2011-0037662

PATIENT
  Sex: Male

DRUGS (2)
  1. COUMADIN [Concomitant]
  2. LETAIRIS [Suspect]
     Indication: PULMONARY HYPERTENSION
     Route: 048
     Dates: start: 20101103

REACTIONS (2)
  - BLOOD DISORDER [None]
  - HAEMORRHAGE [None]
